FAERS Safety Report 7498997-9 (Version None)
Quarter: 2011Q2

REPORT INFORMATION
  Report Type: 
  Country: None (occurrence: None)
  Receive Date: 20110516
  Receipt Date: 20110503
  Transmission Date: 20111010
  Serious: Yes (Hospitalization)
  Sender: FDA-Public Use
  Company Number: US-2011-0656

PATIENT
  Age: 81 Year
  Sex: Male

DRUGS (5)
  1. VINORELBINE [Suspect]
     Indication: NON-SMALL CELL LUNG CANCER
     Dosage: 20 MG/M2 IV
     Route: 042
  2. VINORELBINE [Suspect]
     Indication: NON-SMALL CELL LUNG CANCER
     Dosage: 44 MG  IV
     Route: 042
     Dates: start: 20110217
  3. CETUXIMAB [Suspect]
     Indication: NON-SMALL CELL LUNG CANCER
     Dosage: 700 MG IV
     Route: 042
     Dates: start: 20110217
  4. ADVAIR DISKUS 100/50 [Concomitant]
  5. CISPLATIN [Suspect]
     Indication: NON-SMALL CELL LUNG CANCER
     Dosage: 142 MG IV
     Route: 042
     Dates: start: 20110217

REACTIONS (10)
  - CHRONIC OBSTRUCTIVE PULMONARY DISEASE [None]
  - RESPIRATORY FAILURE [None]
  - HAEMOGLOBIN DECREASED [None]
  - PLATELET COUNT DECREASED [None]
  - CONDITION AGGRAVATED [None]
  - NEUTROPENIC SEPSIS [None]
  - MUCOSAL INFLAMMATION [None]
  - RENAL FAILURE ACUTE [None]
  - TOOTH INFECTION [None]
  - HAEMATOCRIT DECREASED [None]
